FAERS Safety Report 16686185 (Version 1)
Quarter: 2019Q3

REPORT INFORMATION
  Report Type: Spontaneous
  Country: CA (occurrence: CA)
  Receive Date: 20190809
  Receipt Date: 20190809
  Transmission Date: 20191004
  Serious: Yes (Hospitalization)
  Sender: FDA-Public Use
  Company Number: CA-CELLTRION INC.-2019CA019987

PATIENT

DRUGS (10)
  1. INFLECTRA [Suspect]
     Active Substance: INFLIXIMAB-DYYB
     Dosage: 900 MG (EVERY 0.2.6 WEEKS THEN EVERY 8 WEEKS)
     Route: 042
     Dates: start: 20190501
  2. FLAGYL [Concomitant]
     Active Substance: METRONIDAZOLE\METRONIDAZOLE HYDROCHLORIDE
     Dosage: DAILY FOR 1 MONTH
     Dates: start: 20190314
  3. INFLECTRA [Suspect]
     Active Substance: INFLIXIMAB-DYYB
     Dosage: 900 MG, (EVERY 0, 2, 6 WEEKS THEN EVERY 8 WEEKS)
     Route: 042
     Dates: start: 20190725
  4. CIPROFLOXACIN. [Concomitant]
     Active Substance: CIPROFLOXACIN
     Dosage: DAILY FOR 1 MONTH
     Route: 048
     Dates: start: 20190314
  5. MEZAVANT [Concomitant]
     Active Substance: MESALAMINE
     Dosage: UNK
  6. INFLECTRA [Suspect]
     Active Substance: INFLIXIMAB-DYYB
     Indication: CROHN^S DISEASE
     Dosage: 900 MG, (EVERY 0, 2, 6 WEEKS THEN EVERY 8 WEEKS)
     Route: 042
     Dates: start: 20190416
  7. INFLECTRA [Suspect]
     Active Substance: INFLIXIMAB-DYYB
     Dosage: 900 MG, (EVERY 0, 2, 6 WEEKS THEN EVERY 8 WEEKS)
     Route: 042
     Dates: start: 20190416
  8. INFLECTRA [Suspect]
     Active Substance: INFLIXIMAB-DYYB
     Dosage: 900 MG (EVERY 0.2.6 WEEKS THEN EVERY 8 WEEKS)
     Route: 042
     Dates: start: 20190529
  9. INFLECTRA [Suspect]
     Active Substance: INFLIXIMAB-DYYB
     Dosage: 900 MG, (EVERY 0, 2, 6 WEEKS THEN EVERY 8 WEEKS) EXTRA INFLECTRA DOSE
     Route: 042
     Dates: start: 20190717
  10. PREDNISONE. [Concomitant]
     Active Substance: PREDNISONE
     Dosage: 20 MG, DAILY DECREASING BY 5MG/WEEK
     Dates: start: 2019

REACTIONS (5)
  - Gastrointestinal infection [Unknown]
  - Product use issue [Unknown]
  - Off label use [Unknown]
  - Condition aggravated [Unknown]
  - Weight decreased [Unknown]
